FAERS Safety Report 13502032 (Version 1)
Quarter: 2017Q2

REPORT INFORMATION
  Report Type: Spontaneous
  Country: RU (occurrence: RU)
  Receive Date: 20170502
  Receipt Date: 20170502
  Transmission Date: 20170830
  Serious: Yes (Other)
  Sender: FDA-Public Use
  Company Number: RU-ASTRAZENECA-2017SE46334

PATIENT
  Age: 71 Year
  Sex: Female
  Weight: 73 kg

DRUGS (8)
  1. BETALOC ZOK [Concomitant]
     Active Substance: METOPROLOL SUCCINATE
  2. EKVATOR [Concomitant]
  3. L-THYROXIN [Concomitant]
     Active Substance: LEVOTHYROXINE SODIUM
  4. PECTROL [Concomitant]
  5. PLAGRIL [Concomitant]
     Active Substance: CLOPIDOGREL BISULFATE
  6. CRESTOR [Suspect]
     Active Substance: ROSUVASTATIN CALCIUM
     Route: 048
  7. MEXIDOL [Concomitant]
  8. SYDNOPHARM [Concomitant]

REACTIONS (1)
  - Myocardial infarction [Recovered/Resolved]
